FAERS Safety Report 7845758-4 (Version None)
Quarter: 2011Q4

REPORT INFORMATION
  Report Type: 
  Country: None (occurrence: None)
  Receive Date: 20111025
  Receipt Date: 20111018
  Transmission Date: 20120403
  Serious: Yes (Death, Hospitalization, Other)
  Sender: FDA-Public Use
  Company Number: US-BAYER-200940630NA

PATIENT
  Age: 61 Year
  Sex: Female
  Weight: 76.19 kg

DRUGS (28)
  1. ACETYLSALICYLIC ACID SRT [Concomitant]
     Dosage: 325 MG, QD
     Route: 048
     Dates: start: 20030111
  2. NITROGLYCERIN [Concomitant]
     Indication: CHEST PAIN
     Dosage: TITRATE,ORAL/IV
     Dates: start: 20030111, end: 20030111
  3. PROZAC [Concomitant]
     Dosage: 20 MG, QD
     Route: 048
  4. LASIX [Concomitant]
     Dosage: 20 MG, UNK
     Route: 042
  5. SOLU-MEDROL [Concomitant]
     Dosage: 125 MG, UNK
  6. LOPRESSOR [Concomitant]
     Indication: ACUTE CORONARY SYNDROME
     Dosage: 12.5 MG, BID
     Route: 048
     Dates: start: 20030113
  7. HEPARIN [Concomitant]
  8. VIOXX [Concomitant]
     Dosage: 25 MG, QD
     Route: 048
     Dates: start: 20030113
  9. VERSED [Concomitant]
  10. PLAVIX [Concomitant]
  11. LEVOPHED [Concomitant]
  12. LOVENOX [Concomitant]
     Dosage: 80 MG, BID
     Route: 048
     Dates: start: 20030113, end: 20030115
  13. TOPROL-XL [Concomitant]
     Dosage: 25 MG, QD
     Route: 048
  14. SCOPOLAMINE [Concomitant]
  15. TRASYLOL [Suspect]
     Dosage: 200 ML, LOADING DOSE
     Route: 042
     Dates: start: 20030130, end: 20030130
  16. KLONOPIN [Concomitant]
     Dosage: 0.5 MG, QD
     Route: 048
  17. LIDOCAINE [Concomitant]
  18. IMDUR [Concomitant]
     Dosage: 30 MG, QD
     Route: 048
  19. INOCOR [Concomitant]
     Dosage: TITRATE
     Route: 042
     Dates: start: 20030130
  20. PREVACID [Concomitant]
     Dosage: 30 MG, QD
     Route: 048
  21. MORPHINE [Concomitant]
  22. NIPRIDE [Concomitant]
  23. TRASYLOL [Suspect]
     Indication: MITRAL VALVE REPLACEMENT
     Dosage: 200 ML PUMP PRIME
     Route: 042
     Dates: start: 20030130, end: 20030130
  24. PROTAMINE SULFATE [Concomitant]
  25. EPINEPHRINE [Concomitant]
     Dosage: TITRATE
     Route: 042
     Dates: start: 20030130
  26. TRASYLOL [Suspect]
     Indication: CORONARY ARTERY BYPASS
     Dosage: 1 ML, ONCE
     Route: 042
     Dates: start: 20030130, end: 20030130
  27. TRASYLOL [Suspect]
     Dosage: 50 ML/HOUR, INFUSION
     Route: 042
     Dates: start: 20030130, end: 20030130
  28. PAVULON [Concomitant]

REACTIONS (13)
  - RENAL INJURY [None]
  - EMOTIONAL DISTRESS [None]
  - STRESS [None]
  - ANXIETY [None]
  - MULTI-ORGAN FAILURE [None]
  - ANHEDONIA [None]
  - INJURY [None]
  - RENAL FAILURE [None]
  - UNEVALUABLE EVENT [None]
  - RENAL IMPAIRMENT [None]
  - PAIN [None]
  - DEATH [None]
  - FEAR [None]
